FAERS Safety Report 22526698 (Version 1)
Quarter: 2023Q2

REPORT INFORMATION
  Report Type: Spontaneous
  Country: BE (occurrence: BE)
  Receive Date: 20230606
  Receipt Date: 20230606
  Transmission Date: 20230721
  Serious: Yes (Hospitalization, Other)
  Sender: FDA-Public Use
  Company Number: BE-ELI_LILLY_AND_COMPANY-BE202306000476

PATIENT
  Age: 65 Year
  Sex: Female

DRUGS (1)
  1. RETEVMO [Suspect]
     Active Substance: SELPERCATINIB
     Indication: Product used for unknown indication
     Dosage: 160 MG, BID
     Route: 048
     Dates: start: 20230505, end: 20230512

REACTIONS (6)
  - Renal failure [Unknown]
  - Sepsis [Unknown]
  - Catheter site infection [Unknown]
  - Decreased immune responsiveness [Unknown]
  - Dehydration [Unknown]
  - Decreased appetite [Unknown]

NARRATIVE: CASE EVENT DATE: 20230501
